FAERS Safety Report 4650425-4 (Version None)
Quarter: 2005Q2

REPORT INFORMATION
  Report Type: 
  Country: None (occurrence: None)
  Receive Date: 20050429
  Receipt Date: 20050418
  Transmission Date: 20051028
  Serious: Yes (Hospitalization, Other)
  Sender: FDA-Public Use
  Company Number: 2005058034

PATIENT
  Age: 52 Year
  Sex: Male

DRUGS (3)
  1. SILDENAFIL CITRATE [Suspect]
     Indication: ERECTILE DYSFUNCTION
     Dosage: 100 MG, AS NECESSARY), ORAL
     Route: 048
  2. ANTIHYPERTENSIVES (ANTIHYPERTENSIVES) [Concomitant]
  3. CHOLESTEROL - AND TRIGLYCERIDE REDUCERS (CHOLESTEROL AND TRIGLYCERIDE [Concomitant]

REACTIONS (1)
  - ARTERIAL OCCLUSIVE DISEASE [None]
